FAERS Safety Report 8581718-6 (Version None)
Quarter: 2012Q2

REPORT INFORMATION
  Report Type: 
  Country: None (occurrence: None)
  Receive Date: 20120423
  Receipt Date: 20101011
  Transmission Date: 20120825
  Serious: Yes (Other)
  Sender: FDA-Public Use
  Company Number: PHHY2010US47641

PATIENT
  Age: 75 Year
  Sex: Female

DRUGS (10)
  1. OXYCODONE HCL [Concomitant]
  2. INSULIN (INSULIN) [Concomitant]
  3. NEURONTIN [Concomitant]
  4. CALCIUM WITH VITAMIN D (CALCIUM PHOSPHATE, CALCIUM SODIUM LACTATE, ERG [Concomitant]
  5. ZYRTEC [Concomitant]
  6. XANAX [Concomitant]
  7. EXJADE [Suspect]
     Indication: SICKLE CELL ANAEMIA
     Dosage: 1.5 G, DAILY, ORAL 1 G, DAILY, ORAL
     Route: 048
     Dates: start: 20091001
  8. NIFEDIPINE [Concomitant]
  9. PRILOSEC [Concomitant]
  10. LISINOPRIL [Concomitant]

REACTIONS (8)
  - TREATMENT NONCOMPLIANCE [None]
  - PLATELET COUNT DECREASED [None]
  - DIARRHOEA [None]
  - HAEMOGLOBIN DECREASED [None]
  - OEDEMA PERIPHERAL [None]
  - SKIN DISCOLOURATION [None]
  - BLOOD UREA INCREASED [None]
  - WHITE BLOOD CELL COUNT DECREASED [None]
